FAERS Safety Report 16758705 (Version 1)
Quarter: 2019Q3

REPORT INFORMATION
  Report Type: Spontaneous
  Country: IT (occurrence: IT)
  Receive Date: 20190830
  Receipt Date: 20190830
  Transmission Date: 20191005
  Serious: Yes (Other)
  Sender: FDA-Public Use
  Company Number: IT-TEVA-2019-IT-1098942

PATIENT
  Age: 65 Year
  Sex: Male

DRUGS (2)
  1. CARBOPLATIN. [Suspect]
     Active Substance: CARBOPLATIN
     Indication: TRANSITIONAL CELL CARCINOMA
     Route: 042
     Dates: start: 20190529, end: 20190710
  2. GEMCITABINE. [Suspect]
     Active Substance: GEMCITABINE
     Indication: TRANSITIONAL CELL CARCINOMA
     Route: 042
     Dates: start: 20190529, end: 20190710

REACTIONS (2)
  - Red blood cell count decreased [Recovering/Resolving]
  - Anaemia [Recovering/Resolving]

NARRATIVE: CASE EVENT DATE: 20190617
